FAERS Safety Report 14306253 (Version 2)
Quarter: 2018Q2

REPORT INFORMATION
  Report Type: Spontaneous
  Country: NL (occurrence: NL)
  Receive Date: 20171219
  Receipt Date: 20180418
  Transmission Date: 20180711
  Serious: No
  Sender: FDA-Public Use
  Company Number: NL-JNJFOC-20170321758

PATIENT
  Age: 58 Year
  Sex: Male

DRUGS (2)
  1. PARACETAMOL [Suspect]
     Active Substance: ACETAMINOPHEN
     Route: 065
  2. PARACETAMOL [Suspect]
     Active Substance: ACETAMINOPHEN
     Indication: HEADACHE
     Dosage: USING ON A NEAR DAILY BASIS.
     Route: 065

REACTIONS (2)
  - Rash generalised [Recovered/Resolved]
  - Fixed eruption [Recovered/Resolved]
